FAERS Safety Report 15370696 (Version 2)
Quarter: 2019Q2

REPORT INFORMATION
  Report Type: Spontaneous
  Country: IN (occurrence: IN)
  Receive Date: 20180911
  Receipt Date: 20190515
  Transmission Date: 20190711
  Serious: Yes (Hospitalization, Other)
  Sender: FDA-Public Use
  Company Number: IN-MYLANLABS-2018M1066377

PATIENT
  Age: 36 Year
  Sex: Male

DRUGS (1)
  1. SILDENAFIL. [Suspect]
     Active Substance: SILDENAFIL
     Indication: PRODUCT USED FOR UNKNOWN INDICATION
     Dosage: 100 MILLIGRAM
     Route: 048

REACTIONS (2)
  - Priapism [Recovered/Resolved]
  - Fracture of penis [Recovered/Resolved]
